FAERS Safety Report 12483433 (Version 4)
Quarter: 2018Q1

REPORT INFORMATION
  Report Type: Report from Study
  Country: US (occurrence: US)
  Receive Date: 20160621
  Receipt Date: 20180316
  Transmission Date: 20180508
  Serious: Yes (Hospitalization)
  Sender: FDA-Public Use
  Company Number: PHEH2016US015016

PATIENT
  Age: 25 Year
  Sex: Male

DRUGS (2)
  1. CAYSTON [Suspect]
     Active Substance: AZTREONAM
     Indication: PRODUCT USED FOR UNKNOWN INDICATION
     Dosage: ALTERNATES BETWEEN TOBI PODHALER AND CAYSTON EVERY 28 DAYS
     Route: 065
  2. TOBI PODHALER [Suspect]
     Active Substance: TOBRAMYCIN
     Indication: CYSTIC FIBROSIS
     Dosage: ALTERNATES BETWEEN TOBI PODHALER AND CAYSTON EVERY 28 DAYS
     Route: 065

REACTIONS (11)
  - Cystic fibrosis related diabetes [Unknown]
  - Malaise [Unknown]
  - Pseudomonas test positive [Unknown]
  - Drug resistance [Unknown]
  - Hypersensitivity [Unknown]
  - General physical health deterioration [Unknown]
  - Osteoporosis [Unknown]
  - Depression [Unknown]
  - Vertigo [Unknown]
  - Dyspnoea [Unknown]
  - Weight increased [Unknown]

NARRATIVE: CASE EVENT DATE: 2014
